FAERS Safety Report 9525790 (Version 2)
Quarter: 2013Q3

REPORT INFORMATION
  Report Type: Spontaneous
  Country: BR (occurrence: BR)
  Receive Date: 20130916
  Receipt Date: 20130916
  Transmission Date: 20140515
  Serious: Yes (Other)
  Sender: FDA-Public Use
  Company Number: BR-BIOGENIDEC-2013BI084321

PATIENT
  Age: 48 Year
  Sex: Female

DRUGS (6)
  1. AVONEX [Suspect]
     Indication: MULTIPLE SCLEROSIS
     Route: 030
     Dates: start: 201003, end: 201306
  2. NEBILET [Concomitant]
     Dates: end: 20130827
  3. CRESTOR [Concomitant]
     Dates: end: 20130827
  4. NEURAL (LAMOTRIGINE) [Concomitant]
     Indication: HYPOAESTHESIA
     Dates: start: 200706
  5. DENYL [Concomitant]
     Indication: DEPRESSION
     Dates: start: 200806
  6. FRONTAL [Concomitant]
     Indication: SLEEP DISORDER
     Dates: start: 200806

REACTIONS (13)
  - Arteritis coronary [Recovered/Resolved]
  - Coronary artery stenosis [Unknown]
  - Carotid artery disease [Unknown]
  - Memory impairment [Unknown]
  - Nervousness [Unknown]
  - Hypoaesthesia [Unknown]
  - Aphasia [Recovered/Resolved]
  - Angina pectoris [Unknown]
  - Myalgia [Unknown]
  - Pain in extremity [Unknown]
  - Headache [Unknown]
  - Insomnia [Unknown]
  - Fatigue [Unknown]
